FAERS Safety Report 5081582-6 (Version None)
Quarter: 2006Q3

REPORT INFORMATION
  Report Type: 
  Country: None (occurrence: None)
  Receive Date: 20060811
  Receipt Date: 20060803
  Transmission Date: 20061208
  Serious: Yes (Hospitalization)
  Sender: FDA-Public Use
  Company Number: S06-USA-03022-01

PATIENT
  Age: 80 Year
  Sex: Male

DRUGS (3)
  1. LEXAPRO [Suspect]
     Indication: ANXIETY
     Dates: start: 20060228
  2. DIOVAN [Concomitant]
  3. CARDURA [Concomitant]

REACTIONS (4)
  - CHEST PAIN [None]
  - HICCUPS [None]
  - HYPONATRAEMIA [None]
  - MUSCLE SPASMS [None]
